FAERS Safety Report 8035638-6 (Version None)
Quarter: 2012Q1

REPORT INFORMATION
  Report Type: 
  Country: None (occurrence: None)
  Receive Date: 20120110
  Receipt Date: 20120110
  Transmission Date: 20120608
  Serious: Yes (Life-Threatening, Other)
  Sender: FDA-Public Use
  Company Number: None

PATIENT
  Sex: Female
  Weight: 83.9154 kg

DRUGS (1)
  1. FUROSEMIDE [Suspect]
     Indication: OEDEMA PERIPHERAL
     Dosage: THREE 2X DAY MOUTH
     Route: 048
     Dates: start: 20111119, end: 20111122

REACTIONS (13)
  - GAIT DISTURBANCE [None]
  - DRY SKIN [None]
  - FEELING ABNORMAL [None]
  - EYE HAEMORRHAGE [None]
  - CHEST PAIN [None]
  - DIZZINESS [None]
  - RASH [None]
  - INCORRECT DOSE ADMINISTERED [None]
  - DRUG PRESCRIBING ERROR [None]
  - REACTION TO PRESERVATIVES [None]
  - NAUSEA [None]
  - ASTHENIA [None]
  - TREMOR [None]
